FAERS Safety Report 13500018 (Version 1)
Quarter: 2017Q2

REPORT INFORMATION
  Report Type: Spontaneous
  Country: AT (occurrence: AT)
  Receive Date: 20170501
  Receipt Date: 20170501
  Transmission Date: 20170830
  Serious: Yes (Death, Other)
  Sender: FDA-Public Use
  Company Number: AT-JNJFOC-20170430170

PATIENT
  Age: 81 Year
  Sex: Male

DRUGS (1)
  1. XARELTO [Suspect]
     Active Substance: RIVAROXABAN
     Indication: ATRIAL FIBRILLATION
     Dosage: DOSAGE: UNKNOWN
     Route: 048

REACTIONS (3)
  - Subdural haemorrhage [Fatal]
  - Subarachnoid haemorrhage [Fatal]
  - Injury [Not Recovered/Not Resolved]

NARRATIVE: CASE EVENT DATE: 201704
